FAERS Safety Report 24067790 (Version 1)
Quarter: 2024Q3

REPORT INFORMATION
  Report Type: Spontaneous
  Country: FR (occurrence: FR)
  Receive Date: 20240710
  Receipt Date: 20240710
  Transmission Date: 20241016
  Serious: Yes (Other)
  Sender: CELLTRION
  Company Number: FR-CELLTRION INC.-2024FR016162

PATIENT

DRUGS (5)
  1. BEVACIZUMAB [Suspect]
     Active Substance: BEVACIZUMAB
     Indication: Product used for unknown indication
     Dosage: 312.5 MILLIGRAM, EVERY DAY (DOSAGE TEXT: 312.5 MG, 1X/DAY(FREQ:24 H))
     Route: 042
     Dates: start: 20221005
  2. TRIFLURIDINE [Suspect]
     Active Substance: TRIFLURIDINE
     Indication: Chemotherapy
     Dosage: 110 MILLIGRAM, EVERY DAY (DOSAGE TEXT: 110 MG, 1X/DAY(FREQ:24 H;))
     Route: 048
     Dates: start: 20230515
  3. SPIRONOLACTONE [Concomitant]
     Active Substance: SPIRONOLACTONE
     Indication: Oedema peripheral
     Dosage: 25 MILLIGRAM, EVERY DAY (DOSAGE TEXT: 25 MG, 1X/DAY(FREQ:24 H;))
     Route: 048
     Dates: start: 20230704
  4. APIXABAN [Concomitant]
     Active Substance: APIXABAN
     Indication: Embolism venous
     Dosage: EVERY DAY (DOSAGE TEXT: UNK UNK, 2X/DAY)
     Route: 048
     Dates: start: 20221122
  5. FUROSEMIDE [Concomitant]
     Active Substance: FUROSEMIDE
     Indication: Oedema peripheral
     Dosage: 20 MILLIGRAM, EVERY DAY (DOSAGE TEXT: 20 MG, 1X/DAY(FREQ:24 H;))
     Route: 048
     Dates: start: 20230704

REACTIONS (1)
  - Anaemia [Recovered/Resolved]

NARRATIVE: CASE EVENT DATE: 20230712
